FAERS Safety Report 18115591 (Version 1)
Quarter: 2020Q3

REPORT INFORMATION
  Report Type: Spontaneous
  Country: US (occurrence: US)
  Receive Date: 20200805
  Receipt Date: 20200805
  Transmission Date: 20201103
  Serious: No
  Sender: FDA-Public Use
  Company Number: US-AMNEAL PHARMACEUTICALS-2019-AMRX-02786

PATIENT
  Age: 3 Year
  Sex: Male

DRUGS (1)
  1. ACYCLOVIR. [Suspect]
     Active Substance: ACYCLOVIR
     Indication: ORAL HERPES
     Dosage: UNK, AS DIRECTED
     Route: 061
     Dates: start: 20191117

REACTIONS (2)
  - Product physical issue [Unknown]
  - Oral herpes [Unknown]

NARRATIVE: CASE EVENT DATE: 201911
